FAERS Safety Report 6865410-1 (Version None)
Quarter: 2010Q3

REPORT INFORMATION
  Report Type: 
  Country: None (occurrence: None)
  Receive Date: 20100721
  Receipt Date: 20080423
  Transmission Date: 20110219
  Serious: No
  Sender: FDA-Public Use
  Company Number: US-PFIZER INC-2008036106

PATIENT
  Sex: Male

DRUGS (5)
  1. CHANTIX [Suspect]
     Dates: start: 20070101, end: 20080101
  2. TEGRETOL [Concomitant]
  3. ZYPREXA [Concomitant]
  4. DRUG, UNSPECIFIED [Concomitant]
  5. ALL OTHER THERAPEUTIC PRODUCTS [Concomitant]

REACTIONS (1)
  - DRUG INEFFECTIVE [None]
